FAERS Safety Report 7211820-2 (Version None)
Quarter: 2011Q1

REPORT INFORMATION
  Report Type: 
  Country: None (occurrence: None)
  Receive Date: 20110105
  Receipt Date: 20101220
  Transmission Date: 20110831
  Serious: No
  Sender: FDA-Public Use
  Company Number: US-BAYER-2010-008654

PATIENT
  Sex: Female

DRUGS (1)
  1. BETAPACE AF [Suspect]
     Indication: PRODUCT USED FOR UNKNOWN INDICATION

REACTIONS (4)
  - PRESYNCOPE [None]
  - BLOOD PRESSURE INCREASED [None]
  - TACHYCARDIA [None]
  - DIZZINESS [None]
